FAERS Safety Report 5444258-9 (Version None)
Quarter: 2007Q3

REPORT INFORMATION
  Report Type: 
  Country: None (occurrence: None)
  Receive Date: 20070904
  Receipt Date: 20070904
  Transmission Date: 20080115
  Serious: Yes (Hospitalization, Disabling, Other)
  Sender: FDA-Public Use
  Company Number: None

PATIENT
  Age: 22 Year
  Sex: Female
  Weight: 65.7716 kg

DRUGS (1)
  1. MIRENA [Suspect]
     Indication: CONTRACEPTION
     Dosage: DAILY INTRA-UTERI
     Route: 015
     Dates: start: 20050912, end: 20070803

REACTIONS (6)
  - ACNE CYSTIC [None]
  - ALOPECIA [None]
  - DEPRESSION [None]
  - FATIGUE [None]
  - PAIN [None]
  - WEIGHT INCREASED [None]
